FAERS Safety Report 4274755-3 (Version None)
Quarter: 2004Q1

REPORT INFORMATION
  Report Type: 
  Country: None (occurrence: None)
  Receive Date: 20040120
  Receipt Date: 20040120
  Transmission Date: 20041129
  Serious: Yes (Other)
  Sender: FDA-Public Use
  Company Number: None

PATIENT
  Age: 84 Year
  Sex: Female
  Weight: 39.8 kg

DRUGS (9)
  1. GATIFLOXACIN [Suspect]
     Indication: PNEUMONIA
     Dosage: 400 MG IV 4 DOSE
     Route: 042
     Dates: start: 20040106
  2. GATIFLOXACIN [Suspect]
     Indication: SEPSIS
     Dosage: 400 MG IV 4 DOSE
     Route: 042
     Dates: start: 20040106
  3. LABETALOL HCL [Concomitant]
  4. ZOLOFT [Concomitant]
  5. NORVASC [Concomitant]
  6. ALBUTEROL [Concomitant]
  7. M.V.I. [Concomitant]
  8. MEGACE [Concomitant]
  9. ACETAMINOPHEN [Concomitant]

REACTIONS (2)
  - BLOOD GLUCOSE DECREASED [None]
  - POSTURING [None]
